FAERS Safety Report 9975898 (Version 2)
Quarter: 2014Q2

REPORT INFORMATION
  Report Type: Spontaneous
  Country: US (occurrence: US)
  Receive Date: 20140306
  Receipt Date: 20140423
  Transmission Date: 20141212
  Serious: No
  Sender: FDA-Public Use
  Company Number: US-PFIZER INC-2014060154

PATIENT
  Age: 25 Year
  Sex: Male
  Weight: 97.51 kg

DRUGS (2)
  1. ADVIL [Suspect]
     Indication: BACK PAIN
     Dosage: 200 MG, THREE TIMES A DAY
     Route: 048
     Dates: start: 2014, end: 20140228
  2. ADVIL LIQUI-GELS [Concomitant]
     Dosage: UNK

REACTIONS (1)
  - Drug ineffective [Unknown]
